FAERS Safety Report 25492305 (Version 1)
Quarter: 2025Q2

REPORT INFORMATION
  Report Type: Spontaneous
  Country: US (occurrence: US)
  Receive Date: 20250630
  Receipt Date: 20250630
  Transmission Date: 20250717
  Serious: No
  Sender: TOLMAR
  Company Number: US-Tolmar-TLM-2025-02044

PATIENT
  Age: 49 Year
  Sex: Male
  Weight: 86.82 kg

DRUGS (3)
  1. ELIGARD [Suspect]
     Active Substance: LEUPROLIDE ACETATE
     Indication: Prostate cancer
     Route: 065
     Dates: start: 20250519
  2. DEVICE [Suspect]
     Active Substance: DEVICE
     Indication: Prostate cancer
  3. X-tandi [Concomitant]
     Indication: Prostate cancer

REACTIONS (3)
  - Intercepted product administration error [Unknown]
  - Incorrect dose administered [Unknown]
  - Needle issue [Unknown]

NARRATIVE: CASE EVENT DATE: 20250519
